FAERS Safety Report 5044257-5 (Version None)
Quarter: 2006Q3

REPORT INFORMATION
  Report Type: 
  Country: None (occurrence: None)
  Receive Date: 20060706
  Receipt Date: 20060627
  Transmission Date: 20061208
  Serious: Yes (Hospitalization, Other)
  Sender: FDA-Public Use
  Company Number: US-AVENTIS-200615526US

PATIENT
  Sex: Male

DRUGS (18)
  1. ARAVA [Suspect]
     Indication: RHEUMATOID ARTHRITIS
     Dates: start: 19970101, end: 20060509
  2. ALBUTEROL SPIROS [Concomitant]
     Dosage: DOSE: UNK
  3. LOPRESSOR [Concomitant]
     Dosage: DOSE: UNK
  4. MIRAPEX [Concomitant]
     Dosage: DOSE: UNK
  5. SINGULAIR [Concomitant]
     Dosage: DOSE: UNK
  6. PROTONIX [Concomitant]
     Dosage: DOSE: TAKES PROTONIX OR PREVACID-ONE OR THE OTHER
  7. PREVACID [Concomitant]
     Dosage: DOSE: TAKES PREVACID OR PROTONIX-TAKES ONE OR THE OTHER
  8. DIOVAN [Concomitant]
     Dosage: DOSE: UNK
  9. LOTREMIN [Concomitant]
     Dosage: DOSE: UNK
  10. LIPITOR [Concomitant]
     Dosage: DOSE: UNK
  11. KLONIPIN [Concomitant]
     Dosage: DOSE: UNK
  12. FLOVENT [Concomitant]
     Dosage: DOSE: UNK
  13. HYDROCHLOROTHIAZIDE [Concomitant]
     Dosage: DOSE: UNK
  14. SEREVENT [Concomitant]
     Dosage: DOSE: UNK
  15. PAXIL [Concomitant]
     Dosage: DOSE: UNK
  16. CARDURA [Concomitant]
     Dosage: DOSE: UNK
  17. WELLBUTRIN [Concomitant]
     Dosage: DOSE: UNK
  18. CELEBREX [Concomitant]
     Dosage: DOSE: UNK
     Dates: end: 20060509

REACTIONS (13)
  - AKINESIA [None]
  - BALANCE DISORDER [None]
  - DIZZINESS [None]
  - DRUG INEFFECTIVE [None]
  - ERYTHEMA [None]
  - GAIT DISTURBANCE [None]
  - HAEMORRHAGIC STROKE [None]
  - LOCALISED INFECTION [None]
  - OEDEMA PERIPHERAL [None]
  - RED BLOOD CELL COUNT DECREASED [None]
  - SPLENOMEGALY [None]
  - VOMITING [None]
  - WHITE BLOOD CELL COUNT DECREASED [None]
